FAERS Safety Report 25633234 (Version 1)
Quarter: 2025Q3

REPORT INFORMATION
  Report Type: Spontaneous
  Country: US (occurrence: None)
  Receive Date: 20250731
  Receipt Date: 20250731
  Transmission Date: 20251021
  Serious: Yes (Hospitalization)
  Sender: FDA-CTU
  Company Number: None

PATIENT
  Age: 12 Year
  Sex: Male
  Weight: 36.3 kg

DRUGS (1)
  1. DELANDISTROGENE MOXEPARVOVEC [Suspect]
     Active Substance: DELANDISTROGENE MOXEPARVOVEC
     Route: 042
     Dates: start: 20250501

REACTIONS (2)
  - Immune-mediated myositis [None]
  - Immune-mediated myocarditis [None]

NARRATIVE: CASE EVENT DATE: 20250625
